FAERS Safety Report 20572439 (Version 1)
Quarter: 2022Q1

REPORT INFORMATION
  Report Type: Spontaneous
  Country: CA (occurrence: None)
  Receive Date: 20220309
  Receipt Date: 20220309
  Transmission Date: 20220423
  Serious: Yes (Other)
  Sender: FDA-Public Use
  Company Number: 2022A097613

PATIENT
  Age: 59 Year
  Sex: Female

DRUGS (1)
  1. SYMBICORT [Suspect]
     Active Substance: BUDESONIDE\FORMOTEROL FUMARATE DIHYDRATE
     Indication: Chronic obstructive pulmonary disease
     Dosage: DOSE AND FREQUENCY WERE UNKNOWN UNKNOWN
     Route: 055

REACTIONS (8)
  - Choking [Unknown]
  - COVID-19 [Unknown]
  - Chronic obstructive pulmonary disease [Unknown]
  - Hyperventilation [Unknown]
  - Blister [Unknown]
  - Dyspnoea [Unknown]
  - Device issue [Unknown]
  - Drug ineffective [Unknown]
